FAERS Safety Report 17875298 (Version 1)
Quarter: 2020Q2

REPORT INFORMATION
  Report Type: Report from Study
  Country: DE (occurrence: DE)
  Receive Date: 20200609
  Receipt Date: 20200609
  Transmission Date: 20200714
  Serious: Yes (Hospitalization)
  Sender: FDA-Public Use
  Company Number: DE-DECIPHERA PHARMACEUTICALS-2019DE000160

PATIENT
  Age: 44 Year
  Sex: Male

DRUGS (25)
  1. FIDAXOMICIN [Concomitant]
     Active Substance: FIDAXOMICIN
     Indication: CLOSTRIDIUM DIFFICILE INFECTION
     Dosage: 200 MG, UNK
     Route: 048
     Dates: start: 20190619
  2. DCC-2618 [Suspect]
     Active Substance: RIPRETINIB
     Dosage: 150 MG, QD
     Route: 048
     Dates: start: 20190515, end: 20190603
  3. DCC-2618 [Suspect]
     Active Substance: RIPRETINIB
     Dosage: 150 MG, QD
     Route: 048
     Dates: start: 20190604, end: 20190604
  4. DCC-2618 [Suspect]
     Active Substance: RIPRETINIB
     Dosage: 150 MG, QD
     Route: 048
     Dates: start: 20190624, end: 20190625
  5. DCC-2618 [Suspect]
     Active Substance: RIPRETINIB
     Dosage: 150 MG, QD
     Route: 048
     Dates: start: 20190626, end: 20190701
  6. PANTOZOL [Concomitant]
     Active Substance: PANTOPRAZOLE SODIUM
     Indication: GASTROOESOPHAGEAL REFLUX DISEASE
     Dosage: 40 MG, QD
     Route: 042
     Dates: start: 20190611
  7. POSTERISAN H [Concomitant]
     Indication: PROPHYLAXIS
     Dosage: OINTMENT
     Route: 061
     Dates: start: 20190603
  8. FOLSAN [Concomitant]
     Active Substance: FOLIC ACID
     Indication: PROPHYLAXIS
     Dosage: 5 MG, UNK
     Route: 048
  9. CELESTAMIN [Concomitant]
     Indication: PROPHYLAXIS
     Dosage: 10 ML, UNK
     Route: 048
  10. FEXOFENADINE HYDROCHLORIDE. [Concomitant]
     Active Substance: FEXOFENADINE HYDROCHLORIDE
     Indication: PROPHYLAXIS
     Dosage: 240 MG, UNK
     Route: 048
     Dates: start: 20190423
  11. DCC-2618 [Suspect]
     Active Substance: RIPRETINIB
     Dosage: 150 MG, QD
     Route: 048
     Dates: start: 20190605, end: 20190611
  12. DCC-2618 [Suspect]
     Active Substance: RIPRETINIB
     Dosage: 150 MG, QD
     Route: 048
     Dates: start: 20190612, end: 20190612
  13. VALSARTAN. [Concomitant]
     Active Substance: VALSARTAN
     Indication: HYPERTENSION
     Dosage: 80 MG, UNK
     Route: 048
     Dates: end: 20190630
  14. BEROTEC [Concomitant]
     Active Substance: FENOTEROL HYDROBROMIDE
     Indication: PROPHYLAXIS
     Dosage: 0.6 MG, UNK
     Route: 055
  15. DIMETINDENE [Concomitant]
     Active Substance: DIMETHINDENE
     Indication: PROPHYLAXIS
     Dosage: UNK TABLESPOON, UNK
     Route: 048
     Dates: start: 20190507
  16. LEVOFLOXACIN. [Concomitant]
     Active Substance: LEVOFLOXACIN
     Indication: PYREXIA
     Dosage: UNK
     Route: 048
     Dates: start: 20190616, end: 20190622
  17. ALLOPURINOL. [Concomitant]
     Active Substance: ALLOPURINOL
     Indication: PROPHYLAXIS
     Dosage: 100 MG, UNK
     Route: 048
     Dates: start: 20190507
  18. DCC-2618 [Suspect]
     Active Substance: RIPRETINIB
     Indication: SYSTEMIC MASTOCYTOSIS
     Dosage: 150 MG, QD
     Route: 048
     Dates: start: 20190507, end: 20190507
  19. DCC-2618 [Suspect]
     Active Substance: RIPRETINIB
     Dosage: 150 MG, QD
     Route: 048
     Dates: start: 20190508, end: 20190513
  20. DCC-2618 [Suspect]
     Active Substance: RIPRETINIB
     Dosage: 150 MG, QD
     Route: 048
     Dates: start: 20190514, end: 20190514
  21. ALLOPURINOL. [Concomitant]
     Active Substance: ALLOPURINOL
     Dosage: 100 MG, UNK
     Route: 048
     Dates: start: 20190507
  22. VITAMIN B12 [Concomitant]
     Active Substance: CYANOCOBALAMIN
     Indication: PROPHYLAXIS
     Dosage: 1000 MCG, UNK
     Route: 048
     Dates: start: 20190605
  23. DCC-2618 [Suspect]
     Active Substance: RIPRETINIB
     Dosage: 150 MG, BID
     Route: 048
     Dates: start: 20190702, end: 20190722
  24. DCC-2618 [Suspect]
     Active Substance: RIPRETINIB
     Dosage: 150 MG, QD
     Route: 048
     Dates: start: 20190613, end: 20190623
  25. RANITIDINE. [Concomitant]
     Active Substance: RANITIDINE
     Indication: MASTOCYTOSIS
     Dosage: 750 MG, UNK
     Route: 048
     Dates: start: 20190422

REACTIONS (1)
  - Staphylococcal infection [Recovered/Resolved]

NARRATIVE: CASE EVENT DATE: 20190722
